FAERS Safety Report 23033510 (Version 5)
Quarter: 2023Q4

REPORT INFORMATION
  Report Type: Spontaneous
  Country: CA (occurrence: CA)
  Receive Date: 20231005
  Receipt Date: 20231201
  Transmission Date: 20240109
  Serious: Yes (Other)
  Sender: FDA-Public Use
  Company Number: CA-PFIZER INC-2020483085

PATIENT
  Age: 85 Year
  Sex: Male
  Weight: 77.5 kg

DRUGS (17)
  1. RUXIENCE [Suspect]
     Active Substance: RITUXIMAB-PVVR
     Indication: Granulomatosis with polyangiitis
     Dosage: 500 MG DAY 0 AND 15
     Route: 042
     Dates: start: 20210225, end: 20210310
  2. RUXIENCE [Suspect]
     Active Substance: RITUXIMAB-PVVR
     Indication: Microscopic polyangiitis
     Dosage: 500 MG DAY 0 AND 14
     Route: 042
     Dates: start: 20211019, end: 20211102
  3. RUXIENCE [Suspect]
     Active Substance: RITUXIMAB-PVVR
     Dosage: 500 MG DAY 0 AND 14
     Route: 042
     Dates: start: 20220502, end: 20220517
  4. RUXIENCE [Suspect]
     Active Substance: RITUXIMAB-PVVR
     Dosage: 500 MG DAY 0 AND DAY 14 EVERY 6 MONTHS (RETREATMENT)
     Route: 042
     Dates: start: 20230125, end: 20230207
  5. RUXIENCE [Suspect]
     Active Substance: RITUXIMAB-PVVR
     Dosage: 500 MG RETREATMENT DAY 0 AND DAY 14 EVERY 6 MONTHS
     Route: 042
     Dates: start: 20230207
  6. RUXIENCE [Suspect]
     Active Substance: RITUXIMAB-PVVR
     Dosage: 500 MG, AFTER 39 WEEKS (SINGLE DOSE)
     Route: 042
     Dates: start: 20231108, end: 20231108
  7. ACETAMINOPHEN [Concomitant]
     Active Substance: ACETAMINOPHEN
     Indication: Premedication
     Dosage: 500 MG
     Route: 048
     Dates: start: 20220502, end: 20220502
  8. ACETAMINOPHEN [Concomitant]
     Active Substance: ACETAMINOPHEN
     Dosage: UNK
     Dates: start: 20231108, end: 20231108
  9. BENADRYL [Concomitant]
     Active Substance: DIPHENHYDRAMINE HYDROCHLORIDE
     Indication: Premedication
     Dosage: 50 MG, PER OS
     Dates: start: 20231108, end: 20231108
  10. DIPHENHYDRAMINE [Concomitant]
     Active Substance: DIPHENHYDRAMINE
     Indication: Premedication
     Dosage: 25 MG
     Route: 048
     Dates: start: 20220502, end: 20220502
  11. DIPHENHYDRAMINE [Concomitant]
     Active Substance: DIPHENHYDRAMINE
     Dosage: UNK
     Dates: start: 20231108, end: 20231108
  12. FLUDROCORTISONE [Concomitant]
     Active Substance: FLUDROCORTISONE
     Dosage: 1 DF, UNKNOWN DOSE
     Route: 065
  13. METHYLPREDNISOLONE [Concomitant]
     Active Substance: METHYLPREDNISOLONE
     Indication: Premedication
     Dosage: 100 MG
     Route: 042
     Dates: start: 20220502, end: 20220502
  14. METHYLPREDNISOLONE [Concomitant]
     Active Substance: METHYLPREDNISOLONE
     Dosage: UNK
     Dates: start: 20231108, end: 20231108
  15. TYLENOL [Concomitant]
     Active Substance: ACETAMINOPHEN
     Indication: Premedication
     Dosage: 325 MG, PER OS
     Dates: start: 20231108, end: 20231108
  16. SOLU-CORTEF [Concomitant]
     Active Substance: HYDROCORTISONE SODIUM SUCCINATE
     Indication: Premedication
     Dosage: 100 MG
     Route: 042
  17. CHOLECALCIFEROL [Concomitant]
     Active Substance: CHOLECALCIFEROL
     Dosage: 1 DF, UNKNOWN DOSE
     Route: 065

REACTIONS (11)
  - Dizziness [Unknown]
  - Gait disturbance [Unknown]
  - Blood pressure diastolic decreased [Not Recovered/Not Resolved]
  - Heart rate decreased [Not Recovered/Not Resolved]
  - White blood cell count increased [Unknown]
  - Infection [Unknown]
  - Blood pressure fluctuation [Recovered/Resolved]
  - Urinary tract infection [Unknown]
  - Off label use [Unknown]
  - Off label use [Unknown]
  - Intentional product use issue [Unknown]

NARRATIVE: CASE EVENT DATE: 20220502
